FAERS Safety Report 20045084 (Version 2)
Quarter: 2021Q4

REPORT INFORMATION
  Report Type: Spontaneous
  Country: AR (occurrence: AR)
  Receive Date: 20211108
  Receipt Date: 20211111
  Transmission Date: 20220303
  Serious: Yes (Death)
  Sender: FDA-Public Use
  Company Number: AR-BAYER-2021A244579

PATIENT
  Age: 78 Year
  Sex: Male

DRUGS (1)
  1. XOFIGO [Suspect]
     Active Substance: RADIUM RA-223 DICHLORIDE
     Indication: Hormone-refractory prostate cancer
     Dosage: UNK
     Dates: start: 201911, end: 202004

REACTIONS (10)
  - Death [Fatal]
  - Bone pain [None]
  - Diarrhoea [None]
  - Faeces pale [None]
  - Mean cell volume increased [None]
  - Mean cell haemoglobin increased [None]
  - Neutrophil count increased [None]
  - Lymphocyte count decreased [None]
  - Monocyte count increased [None]
  - Red blood cell sedimentation rate increased [None]

NARRATIVE: CASE EVENT DATE: 20200101
